FAERS Safety Report 19012934 (Version 1)
Quarter: 2021Q1

REPORT INFORMATION
  Report Type: Report from Study
  Country: US (occurrence: US)
  Receive Date: 20210316
  Receipt Date: 20210316
  Transmission Date: 20210420
  Serious: Yes (Other)
  Sender: FDA-Public Use
  Company Number: US-UCBSA-2021011428

PATIENT
  Sex: Female
  Weight: 111.77 kg

DRUGS (1)
  1. LACOSAMIDE. [Suspect]
     Active Substance: LACOSAMIDE
     Indication: SEIZURE
     Dosage: 100MG? 0.5MG TAB DAILY
     Route: 048

REACTIONS (7)
  - Major depression [Unknown]
  - Underdose [Unknown]
  - Product use issue [Unknown]
  - Craniocerebral injury [Unknown]
  - Loss of consciousness [Unknown]
  - Seizure [Unknown]
  - Anxiety [Unknown]
